FAERS Safety Report 15536897 (Version 1)
Quarter: 2018Q4

REPORT INFORMATION
  Report Type: Spontaneous
  Country: US (occurrence: US)
  Receive Date: 20181016
  Receipt Date: 20181016
  Transmission Date: 20190205
  Serious: Yes (Hospitalization)
  Sender: FDA-Public Use
  Company Number: None

PATIENT
  Age: 92 Year
  Sex: Female

DRUGS (1)
  1. VERZENIO [Suspect]
     Active Substance: ABEMACICLIB
     Indication: ILL-DEFINED DISORDER
     Route: 048
     Dates: start: 20180921, end: 20180930

REACTIONS (3)
  - Balance disorder [None]
  - Fall [None]
  - Renal impairment [None]

NARRATIVE: CASE EVENT DATE: 20180930
